FAERS Safety Report 15734914 (Version 5)
Quarter: 2019Q2

REPORT INFORMATION
  Report Type: Spontaneous
  Country: FR (occurrence: FR)
  Receive Date: 20181218
  Receipt Date: 20190606
  Transmission Date: 20190711
  Serious: Yes (Death, Hospitalization, Other)
  Sender: FDA-Public Use
  Company Number: FR-MYLANLABS-2018M1094027

PATIENT
  Age: 56 Year
  Sex: Male

DRUGS (26)
  1. ALPRAZOLAM. [Suspect]
     Active Substance: ALPRAZOLAM
     Dosage: 3 DF, TID (0.25 MG)
     Route: 048
     Dates: start: 20080718
  2. AMOXICILLIN/CLAVULANIC ACID [Suspect]
     Active Substance: AMOXICILLIN\CLAVULANIC ACID
     Indication: LUNG DISORDER
     Dosage: 1 GRAM, QD
     Route: 065
     Dates: start: 20080622, end: 20080630
  3. ABILIFY [Suspect]
     Active Substance: ARIPIPRAZOLE
     Indication: PSYCHOTIC DISORDER
     Dosage: 10 MILLIGRAM, QD
     Route: 048
     Dates: start: 20080715
  4. AMOXICILLIN/CLAVULANIC ACID [Suspect]
     Active Substance: AMOXICILLIN\CLAVULANIC ACID
     Dosage: 9 DOSAGE FORM, QD
     Route: 048
     Dates: start: 20080622, end: 20080630
  5. HYDROXYZINE [Suspect]
     Active Substance: HYDROXYZINE HYDROCHLORIDE
     Indication: PRODUCT USED FOR UNKNOWN INDICATION
     Dosage: 100 MG, UNK
     Route: 065
     Dates: start: 20080621
  6. CYAMEMAZINE [Suspect]
     Active Substance: CYAMEMAZINE
     Indication: PSYCHOTIC DISORDER
     Dosage: 25 MILLIGRAM, QD, 2 DF, BID (50 MG)
     Route: 048
     Dates: start: 20080718
  7. AMOXICILLIN/CLAVULANIC ACID [Suspect]
     Active Substance: AMOXICILLIN\CLAVULANIC ACID
     Indication: PNEUMONIA ASPIRATION
     Dosage: 3 GRAM, QD (1 G, TID)(3 DF TID OR 9 DF QD)
     Route: 065
     Dates: start: 20080622, end: 20080630
  8. ALPRAZOLAM. [Suspect]
     Active Substance: ALPRAZOLAM
     Indication: PSYCHOTIC DISORDER
     Dosage: 0.25 MILLIGRAM, QD, 3 DF, TID (0.25 MG)
     Route: 048
     Dates: start: 20080718
  9. AMISULPRIDE [Suspect]
     Active Substance: AMISULPRIDE
     Indication: PSYCHOTIC DISORDER
     Dosage: 50 MILLIGRAM, QD
     Route: 048
     Dates: start: 20080621
  10. XANAX [Suspect]
     Active Substance: ALPRAZOLAM
     Indication: PSYCHOTIC DISORDER
     Dosage: 0.25 MILLIGRAM, TID(3 DF, TID , 9 DF QD)
     Route: 048
     Dates: start: 20080718
  11. TROPATEPINE [Suspect]
     Active Substance: TROPATEPINE
     Indication: PRODUCT USED FOR UNKNOWN INDICATION
     Dosage: 10 MILLIGRAM, QD
     Route: 048
     Dates: start: 20080621
  12. LOXAPINE. [Suspect]
     Active Substance: LOXAPINE
     Indication: PSYCHOTIC DISORDER
     Dosage: 3 DF, TID (25 MG)(9 DF, QD)
     Route: 065
     Dates: start: 20080703
  13. EFFERALGAN [Concomitant]
     Active Substance: ACETAMINOPHEN
     Indication: PRODUCT USED FOR UNKNOWN INDICATION
     Dosage: 500 MG, UNK (500 MG 6 DAILY)
     Route: 048
     Dates: start: 20080622, end: 20080625
  14. CYAMEMAZINE [Suspect]
     Active Substance: CYAMEMAZINE
     Dosage: 2 DF, BID (50 MG)
     Route: 048
     Dates: start: 20080718
  15. TERCIAN                            /00759301/ [Suspect]
     Active Substance: CYAMEMAZINE
     Indication: PSYCHOTIC DISORDER
     Dosage: 25 MILLIGRAM
     Route: 065
  16. PARACETAMOL [Concomitant]
     Active Substance: ACETAMINOPHEN
     Dosage: 500 MG, UNK (500 MG 6 DAILY)
     Route: 048
     Dates: start: 20080622, end: 20080625
  17. AMOXICILLIN/CLOXACILLIN [Suspect]
     Active Substance: AMOXICILLIN\CLOXACILLIN
     Indication: LUNG DISORDER
     Dosage: 1 G, UNK
     Route: 065
     Dates: start: 20080622, end: 20080630
  18. TERCIAN                            /00759301/ [Suspect]
     Active Substance: CYAMEMAZINE
     Dosage: 4 DOSAGE FORM, QD (2 DF, BID (50 MG))
     Route: 048
     Dates: start: 20080718
  19. AMOXICILLIN TRIHYDRATE [Suspect]
     Active Substance: AMOXICILLIN
     Indication: PRODUCT USED FOR UNKNOWN INDICATION
     Dosage: 1 G, TID
     Route: 065
     Dates: start: 20080622, end: 20080630
  20. PARACETAMOL [Concomitant]
     Active Substance: ACETAMINOPHEN
     Indication: PRODUCT USED FOR UNKNOWN INDICATION
     Dosage: UNK
     Route: 065
  21. KETOPROFEN. [Concomitant]
     Active Substance: KETOPROFEN
     Indication: PRODUCT USED FOR UNKNOWN INDICATION
     Dosage: 4 DOSAGE FORM
     Route: 065
     Dates: start: 20080622, end: 20080626
  22. AMOXICILLIN. [Suspect]
     Active Substance: AMOXICILLIN
     Indication: LUNG DISORDER
     Dosage: 3 GRAM, QD(1 G, TID)
     Route: 065
     Dates: start: 20080622, end: 20080630
  23. SOLIAN [Suspect]
     Active Substance: AMISULPRIDE
     Indication: PSYCHOTIC DISORDER
     Dosage: 50 MILLIGRAM, QD
     Route: 048
     Dates: start: 20080621
  24. LEPTICUR [Suspect]
     Active Substance: TROPATEPINE HYDROCHLORIDE
     Indication: PSYCHOTIC DISORDER
     Dosage: 2 DF, BID (10 MG)(4 DF QD)
     Route: 048
     Dates: start: 20080621
  25. PHLOROGLUCINOL [Concomitant]
     Active Substance: PHLOROGLUCINOL
     Indication: PRODUCT USED FOR UNKNOWN INDICATION
     Dosage: UNK
     Route: 065
     Dates: start: 20080626, end: 2008
  26. SALBUTAMOL [Concomitant]
     Active Substance: ALBUTEROL
     Indication: PRODUCT USED FOR UNKNOWN INDICATION
     Dosage: UNK
     Route: 065
     Dates: start: 20080629, end: 2008

REACTIONS (6)
  - Diarrhoea infectious [Fatal]
  - Leukocytosis [Fatal]
  - Hyperleukocytosis [Fatal]
  - Acute kidney injury [Fatal]
  - Sepsis [Fatal]
  - Enterocolitis [Fatal]

NARRATIVE: CASE EVENT DATE: 20080718
